FAERS Safety Report 6537113-4 (Version None)
Quarter: 2010Q1

REPORT INFORMATION
  Report Type: 
  Country: None (occurrence: None)
  Receive Date: 20100110
  Receipt Date: 20091230
  Transmission Date: 20100710
  Serious: Yes (Other)
  Sender: FDA-Public Use
  Company Number: 2009028228

PATIENT
  Age: 55 Year
  Sex: Male
  Weight: 83.9154 kg

DRUGS (1)
  1. ROGAINE [Suspect]
     Indication: ALOPECIA
     Dosage: TWICE DAILY, TOPICAL
     Route: 061
     Dates: end: 20091001

REACTIONS (4)
  - CAUSTIC INJURY [None]
  - HAIR DISORDER [None]
  - SCAR [None]
  - SKIN IRRITATION [None]
